FAERS Safety Report 15232985 (Version 1)
Quarter: 2018Q3

REPORT INFORMATION
  Report Type: Spontaneous
  Country: DK (occurrence: DK)
  Receive Date: 20180802
  Receipt Date: 20180802
  Transmission Date: 20181010
  Serious: Yes (Hospitalization)
  Sender: FDA-Public Use
  Company Number: DK-ENDO PHARMACEUTICALS INC-2018-040460

PATIENT
  Age: 18 Year
  Sex: Female

DRUGS (1)
  1. FORTESTA [Suspect]
     Active Substance: TESTOSTERONE
     Indication: HORMONE THERAPY
     Dosage: 30 MG (3 PUMPS), DAILY (3 THIN LAYERS IN THE MORNING)
     Route: 003
     Dates: start: 20180116

REACTIONS (2)
  - Off label use [Unknown]
  - Acne cystic [Not Recovered/Not Resolved]

NARRATIVE: CASE EVENT DATE: 2018
